FAERS Safety Report 18961109 (Version 1)
Quarter: 2021Q1

REPORT INFORMATION
  Report Type: Spontaneous
  Country: US (occurrence: US)
  Receive Date: 20210302
  Receipt Date: 20210302
  Transmission Date: 20210420
  Serious: No
  Sender: FDA-Public Use
  Company Number: US-NOVOPROD-712143

PATIENT
  Age: 69 Year
  Sex: Female
  Weight: 97.05 kg

DRUGS (1)
  1. SAXENDA [Suspect]
     Active Substance: LIRAGLUTIDE
     Indication: WEIGHT DECREASED
     Dosage: 0.6 MG, QD
     Route: 058
     Dates: start: 20200127

REACTIONS (2)
  - Dyschezia [Unknown]
  - Constipation [Unknown]

NARRATIVE: CASE EVENT DATE: 20200130
